FAERS Safety Report 10160352 (Version 1)
Quarter: 2014Q2

REPORT INFORMATION
  Report Type: Spontaneous
  Country: US (occurrence: US)
  Receive Date: 20140508
  Receipt Date: 20140508
  Transmission Date: 20141212
  Serious: Yes (Other)
  Sender: FDA-Public Use
  Company Number: US-GLAXOSMITHKLINE-A1072478A

PATIENT
  Age: 78 Year
  Sex: Female

DRUGS (1)
  1. COREG CR [Suspect]
     Indication: CORONARY ARTERY DISEASE
     Route: 065
     Dates: start: 20091008

REACTIONS (1)
  - Transient ischaemic attack [Unknown]
